FAERS Safety Report 9382919 (Version 4)
Quarter: 2013Q3

REPORT INFORMATION
  Report Type: Report from Study
  Country: JP (occurrence: JP)
  Receive Date: 20130703
  Receipt Date: 20130822
  Transmission Date: 20140515
  Serious: Yes (Hospitalization)
  Sender: FDA-Public Use
  Company Number: JP-GILEAD-2013-0078204

PATIENT
  Age: 45 Year
  Sex: Male

DRUGS (5)
  1. EMTRICITABINE/TENOFOVIR DISOPROXIL FUMARATE [Suspect]
     Indication: HIV INFECTION
     Dosage: 1 DF, QD
     Route: 048
     Dates: start: 20071015
  2. STOCRIN [Suspect]
     Indication: HIV INFECTION
     Dosage: 600 MG, QD
     Route: 048
     Dates: start: 20071015
  3. KALETRA [Suspect]
     Indication: HIV INFECTION
     Dosage: 6 DF, QD
     Route: 048
     Dates: start: 20071015, end: 20100331
  4. KALETRA [Suspect]
     Dosage: 2 DF, BID
     Route: 048
     Dates: start: 20100401
  5. ZERIT [Suspect]
     Indication: HIV INFECTION
     Dosage: 60 MG, QD
     Route: 048
     Dates: start: 20071015

REACTIONS (1)
  - Osteonecrosis [Not Recovered/Not Resolved]
